FAERS Safety Report 17319682 (Version 2)
Quarter: 2025Q4

REPORT INFORMATION
  Report Type: Spontaneous
  Country: EU (occurrence: EU)
  Receive Date: 20200125
  Receipt Date: 20251226
  Transmission Date: 20260118
  Serious: Yes (Other)
  Sender: ACCORD
  Company Number: EU-ACCORD-170582

PATIENT
  Age: 18 Year
  Sex: Male

DRUGS (7)
  1. LEVETIRACETAM [Suspect]
     Active Substance: LEVETIRACETAM
     Indication: Epilepsy
     Dosage: REDUCED TO FROM 1,600 MG TO 1,200 MG,(AT A REDUCED?DOSE OF LEVETIRACETAM TO 1000 MG/DAY)
     Dates: start: 2017, end: 201806
  2. VALPROATE SODIUM [Suspect]
     Active Substance: VALPROATE SODIUM
     Indication: Epilepsy
     Dates: end: 201804
  3. LEVETIRACETAM [Suspect]
     Active Substance: LEVETIRACETAM
     Indication: Epilepsy
     Dosage: REDUCED TO FROM 1,600 MG TO 1,200 MG,(AT A REDUCED?DOSE OF LEVETIRACETAM TO 1000 MG/DAY)
     Dates: start: 2017
  4. LEVETIRACETAM [Suspect]
     Active Substance: LEVETIRACETAM
     Indication: Epilepsy
     Dosage: 100 MILLIGRAM, DAILY
     Dates: start: 2017
  5. LEVETIRACETAM [Suspect]
     Active Substance: LEVETIRACETAM
     Indication: Epilepsy
     Dosage: 1200 MILLIGRAM, ONCE A DAY (DOSE GRADUALLY REDUCED )DOSE OF LEVETIRACETAM TO 1000 MG/DAY)
     Dates: start: 2018
  6. LEVETIRACETAM [Suspect]
     Active Substance: LEVETIRACETAM
     Indication: Epilepsy
     Dosage: 1200 MILLIGRAM, ONCE A DAY
     Dates: start: 201806, end: 201901
  7. LEVETIRACETAM [Suspect]
     Active Substance: LEVETIRACETAM
     Indication: Epilepsy
     Dosage: 1000 MILLIGRAM, DAILY
     Dates: start: 201901

REACTIONS (3)
  - Aggression [Recovered/Resolved]
  - Hypersexuality [Recovering/Resolving]
  - Sexual dysfunction [Recovering/Resolving]

NARRATIVE: CASE EVENT DATE: 20170101
